FAERS Safety Report 12930671 (Version 4)
Quarter: 2019Q2

REPORT INFORMATION
  Report Type: Spontaneous
  Country: US (occurrence: US)
  Receive Date: 20161110
  Receipt Date: 20190401
  Transmission Date: 20190711
  Serious: No
  Sender: FDA-Public Use
  Company Number: US-VANDA PHARMACEUTICALS, INC-2016TASUS001332

PATIENT
  Age: 77 Year
  Sex: Male

DRUGS (2)
  1. HETLIOZ [Suspect]
     Active Substance: TASIMELTEON
     Indication: CIRCADIAN RHYTHM SLEEP DISORDER
     Dosage: TAKE 1 CAPSULE, EVERY 24 HOURS
     Route: 048
     Dates: start: 201605
  2. HETLIOZ [Suspect]
     Active Substance: TASIMELTEON
     Dosage: TAKE 1 CAPSULE, EVERY 24 HOURS
     Route: 048
     Dates: start: 201605

REACTIONS (4)
  - Initial insomnia [Unknown]
  - Drug ineffective [Unknown]
  - Somnolence [Unknown]
  - Nightmare [Unknown]
